FAERS Safety Report 12246416 (Version 1)
Quarter: 2016Q2

REPORT INFORMATION
  Report Type: Spontaneous
  Country: IT (occurrence: IT)
  Receive Date: 20160407
  Receipt Date: 20160407
  Transmission Date: 20160815
  Serious: Yes (Death, Hospitalization)
  Sender: FDA-Public Use
  Company Number: IT-BAYER-2016-061045

PATIENT
  Age: 76 Year
  Sex: Female

DRUGS (9)
  1. MEDROL [Concomitant]
     Active Substance: METHYLPREDNISOLONE
     Indication: RHEUMATOID ARTHRITIS
     Dosage: DAILY DOSE 2 MG
     Route: 048
  2. PLAQUENIL [Concomitant]
     Active Substance: HYDROXYCHLOROQUINE SULFATE
     Indication: RHEUMATOID ARTHRITIS
     Dosage: DAILY DOSE 200 MG
     Route: 048
  3. PANTOPRAZOLE [Concomitant]
     Active Substance: PANTOPRAZOLE SODIUM
     Indication: ANTACID THERAPY
     Dosage: DAILY DOSE 20 MG
     Route: 048
  4. METHOTREXATE [Concomitant]
     Active Substance: METHOTREXATE
     Indication: RHEUMATOID ARTHRITIS
     Dosage: DAILY DOSE 7.5 MG
     Route: 048
  5. CARDIOASPIRIN [Suspect]
     Active Substance: ASPIRIN
     Indication: EMBOLIC STROKE
     Dosage: DAILY DOSE 100 MG
     Route: 048
     Dates: start: 20130101, end: 20160210
  6. GABAPENTIN. [Concomitant]
     Active Substance: GABAPENTIN
     Indication: NEUROPATHY PERIPHERAL
     Dosage: DAILY DOSE 1200 MG
     Route: 048
  7. CLEXANE [Suspect]
     Active Substance: ENOXAPARIN SODIUM
     Indication: THROMBOSIS PROPHYLAXIS
     Dosage: DAILY DOSE 4000 DF
     Route: 058
     Dates: start: 20160104, end: 20160210
  8. FOLINA [Concomitant]
     Active Substance: FOLIC ACID
     Dosage: DAILY DOSE 5 MG
     Route: 048
  9. AMLODIPINE [Concomitant]
     Active Substance: AMLODIPINE BESYLATE
     Indication: HYPERTENSION
     Dosage: DAILY DOSE 5 MG
     Route: 048

REACTIONS (1)
  - Cerebral haemorrhage [Fatal]

NARRATIVE: CASE EVENT DATE: 20160210
